FAERS Safety Report 14968190 (Version 1)
Quarter: 2018Q2

REPORT INFORMATION
  Report Type: Spontaneous
  Country: US (occurrence: US)
  Receive Date: 20180604
  Receipt Date: 20180604
  Transmission Date: 20180711
  Serious: No
  Sender: FDA-Public Use
  Company Number: US-PFIZER INC-2018225166

PATIENT
  Sex: Female

DRUGS (5)
  1. CYTOMEL [Suspect]
     Active Substance: LIOTHYRONINE SODIUM
  2. SYNTHROID [Suspect]
     Active Substance: LEVOTHYROXINE SODIUM
  3. HUMALOG [Suspect]
     Active Substance: INSULIN LISPRO
  4. LEVOTHYROXINE SODIUM. [Suspect]
     Active Substance: LEVOTHYROXINE SODIUM
  5. PREMPRO [Suspect]
     Active Substance: ESTROGENS, CONJUGATED\MEDROXYPROGESTERONE ACETATE

REACTIONS (1)
  - Alopecia [Unknown]
